FAERS Safety Report 11143064 (Version 2)
Quarter: 2015Q2

REPORT INFORMATION
  Report Type: Spontaneous
  Country: NO (occurrence: NO)
  Receive Date: 20150528
  Receipt Date: 20150529
  Transmission Date: 20150821
  Serious: Yes (Hospitalization, Disabling)
  Sender: FDA-Public Use
  Company Number: NO-UCBSA-2015016198

PATIENT
  Age: 41 Year
  Sex: Female

DRUGS (1)
  1. CIMZIA [Suspect]
     Active Substance: CERTOLIZUMAB PEGOL
     Indication: PSORIATIC ARTHROPATHY
     Dosage: GIVEN SUBCUTANEOUS ACCORDING TO RECOMMENDATIONS IN FELLESKATALOGEN/SPC.
     Route: 058
     Dates: start: 201406, end: 201410

REACTIONS (3)
  - Pulmonary mass [Recovered/Resolved]
  - Conjunctivitis [Recovering/Resolving]
  - Lymphadenopathy [Unknown]

NARRATIVE: CASE EVENT DATE: 201410
